FAERS Safety Report 7572376-8 (Version None)
Quarter: 2011Q2

REPORT INFORMATION
  Report Type: 
  Country: None (occurrence: None)
  Receive Date: 20110624
  Receipt Date: 20110622
  Transmission Date: 20111010
  Serious: Yes (Life-Threatening, Hospitalization, Disabling, Other)
  Sender: FDA-Public Use
  Company Number: PHHY2011FR55481

PATIENT
  Sex: Male

DRUGS (3)
  1. IBUPROFEN [Suspect]
     Indication: ARTHRALGIA
     Dates: end: 20110501
  2. TASIGNA [Suspect]
     Indication: CHRONIC MYELOID LEUKAEMIA
     Dosage: 400 MG, BID
     Route: 048
     Dates: start: 20060801, end: 20110519
  3. LERCANIDIPINE [Concomitant]
     Dates: start: 20101101, end: 20110201

REACTIONS (7)
  - VISUAL IMPAIRMENT [None]
  - CEREBRAL ISCHAEMIA [None]
  - CEREBROVASCULAR ACCIDENT [None]
  - TEMPORAL ARTERITIS [None]
  - HEADACHE [None]
  - VISION BLURRED [None]
  - CAROTID ARTERY THROMBOSIS [None]
